FAERS Safety Report 22098096 (Version 1)
Quarter: 2023Q1

REPORT INFORMATION
  Report Type: Spontaneous
  Country: US (occurrence: US)
  Receive Date: 20230315
  Receipt Date: 20230315
  Transmission Date: 20230418
  Serious: No
  Sender: FDA-Public Use
  Company Number: US-AMNEAL PHARMACEUTICALS-2022-AMRX-01270

PATIENT
  Sex: Female

DRUGS (3)
  1. PANTOPRAZOLE SODIUM [Suspect]
     Active Substance: PANTOPRAZOLE SODIUM
     Indication: Nausea
     Dosage: UNK
     Route: 065
     Dates: start: 20220322
  2. BUDESONIDE [Suspect]
     Active Substance: BUDESONIDE
     Indication: IgA nephropathy
     Dosage: 16 MILLIGRAM, DAILY
     Route: 048
     Dates: start: 20220315
  3. TYLENOL [Concomitant]
     Active Substance: ACETAMINOPHEN
     Indication: Pain
     Route: 065

REACTIONS (13)
  - Blood pressure decreased [Recovered/Resolved]
  - Limb discomfort [Recovered/Resolved]
  - Hyperhidrosis [Recovered/Resolved]
  - Back pain [Recovered/Resolved]
  - Anxiety [Unknown]
  - Burning sensation [Unknown]
  - Peripheral coldness [Recovered/Resolved]
  - Flank pain [Recovered/Resolved]
  - Feeling abnormal [Unknown]
  - Insomnia [Recovered/Resolved]
  - Muscular weakness [Recovered/Resolved]
  - Nausea [Recovered/Resolved]
  - Abdominal pain upper [Recovered/Resolved]
